FAERS Safety Report 8982843 (Version 2)
Quarter: 2013Q1

REPORT INFORMATION
  Report Type: Report from Study
  Country: JP (occurrence: JP)
  Receive Date: 20121221
  Receipt Date: 20130111
  Transmission Date: 20140127
  Serious: Yes (Hospitalization)
  Sender: FDA-Public Use
  Company Number: JP-ROCHE-1169371

PATIENT
  Age: 39 Year
  Sex: Male

DRUGS (17)
  1. TOCILIZUMAB [Suspect]
     Indication: RHEUMATOID ARTHRITIS
     Route: 041
     Dates: start: 20120524, end: 20120719
  2. TOCILIZUMAB [Suspect]
     Route: 041
     Dates: start: 20120913
  3. PROGRAF [Concomitant]
     Route: 048
  4. PREDONINE [Concomitant]
     Indication: RHEUMATOID ARTHRITIS
     Route: 048
  5. BEZATOL SR [Concomitant]
     Dosage: DOSAGE IS UNCERTAIN.
     Route: 048
  6. ZYRTEC [Concomitant]
     Dosage: DOSAGE IS UNCERTAIN.
     Route: 048
  7. LAC-B [Concomitant]
     Indication: PROPHYLAXIS
     Dosage: DOSAGE IS UNCERTAIN.
     Route: 048
  8. DIBASIC POTASSIUM PHOSPHATE [Concomitant]
     Dosage: DOSAGE IS UNCERTAIN.
     Route: 055
  9. ZYLORIC [Concomitant]
     Dosage: DOSAGE IS UNCERTAIN.
     Route: 048
  10. ONEALFA [Concomitant]
     Indication: PROPHYLAXIS
     Dosage: DOSAGE IS UNCERTAIN.
     Route: 048
  11. CALCIUM LACTATE [Concomitant]
     Indication: PROPHYLAXIS
     Dosage: DOSAGE IS UNCERTAIN.
     Route: 048
  12. MUCOSTA [Concomitant]
     Indication: PROPHYLAXIS
     Dosage: DOSAGE IS UNCERTAIN.
     Route: 048
  13. EVOXAC [Concomitant]
     Dosage: DOSAGE IS UNCERTAIN.
     Route: 048
  14. PARIET [Concomitant]
     Indication: PROPHYLAXIS
     Dosage: DOSAGE IS UNCERTAIN.
     Route: 048
  15. HYPEN [Concomitant]
     Indication: RHEUMATOID ARTHRITIS
     Dosage: DOSAGE IS UNCERTAIN.
     Route: 048
  16. HYALEIN [Concomitant]
     Dosage: DOSAGE IS UNCERTAIN.
     Route: 047
  17. BAKUMONDO-TO [Concomitant]
     Dosage: DOSAGE IS UNCERTAIN.
     Route: 048

REACTIONS (2)
  - Femur fracture [Recovered/Resolved]
  - Fall [Recovered/Resolved]
